FAERS Safety Report 6192151-9 (Version None)
Quarter: 2009Q2

REPORT INFORMATION
  Report Type: 
  Country: None (occurrence: None)
  Receive Date: 20090515
  Receipt Date: 20090508
  Transmission Date: 20091009
  Serious: Yes (Hospitalization)
  Sender: FDA-Public Use
  Company Number: US-ABBOTT-08P-163-0482444-00

PATIENT
  Sex: Male
  Weight: 74.91 kg

DRUGS (8)
  1. HUMIRA [Suspect]
     Indication: CROHN'S DISEASE
     Route: 058
     Dates: start: 20080408
  2. MULTI-VITAMIN [Concomitant]
     Indication: DRUG USE FOR UNKNOWN INDICATION
  3. TYLENOL [Concomitant]
     Indication: DRUG USE FOR UNKNOWN INDICATION
  4. IMURAN [Concomitant]
     Indication: DRUG USE FOR UNKNOWN INDICATION
  5. ZYTEC [Concomitant]
     Indication: DRUG USE FOR UNKNOWN INDICATION
  6. LORAZAPINE [Concomitant]
     Indication: DRUG USE FOR UNKNOWN INDICATION
  7. PRILOSEC [Concomitant]
     Indication: DRUG USE FOR UNKNOWN INDICATION
  8. VITAMIN B-12 [Concomitant]
     Indication: DRUG USE FOR UNKNOWN INDICATION

REACTIONS (11)
  - ABDOMINAL DISCOMFORT [None]
  - ABSCESS [None]
  - BRONCHITIS [None]
  - CROHN'S DISEASE [None]
  - FISTULA [None]
  - GASTROINTESTINAL OEDEMA [None]
  - GASTROINTESTINAL TRACT MUCOSAL DISCOLOURATION [None]
  - INFECTION [None]
  - INFLUENZA [None]
  - POST PROCEDURAL DISCOMFORT [None]
  - PYREXIA [None]
